FAERS Safety Report 5456678-7 (Version None)
Quarter: 2007Q3

REPORT INFORMATION
  Report Type: 
  Country: None (occurrence: None)
  Receive Date: 20070917
  Receipt Date: 20070917
  Transmission Date: 20080115
  Serious: No
  Sender: FDA-Public Use
  Company Number: None

PATIENT
  Sex: Female
  Weight: 59.78 kg

DRUGS (2)
  1. CISPLATIN [Suspect]
     Dosage: 79 MG
  2. TOPOTECAN [Suspect]
     Dosage: 3.555 MG

REACTIONS (3)
  - NEUTROPHIL COUNT ABNORMAL [None]
  - PLATELET COUNT ABNORMAL [None]
  - WHITE BLOOD CELL COUNT ABNORMAL [None]
